FAERS Safety Report 4398068-4 (Version None)
Quarter: 2004Q3

REPORT INFORMATION
  Report Type: 
  Country: None (occurrence: None)
  Receive Date: 20040713
  Receipt Date: 20040623
  Transmission Date: 20050211
  Serious: Yes (Death, Hospitalization)
  Sender: FDA-Public Use
  Company Number: ATO-04-0171

PATIENT
  Age: 64 Year
  Sex: Male
  Weight: 89 kg

DRUGS (9)
  1. TRISENOX [Suspect]
     Indication: MYELODYSPLASTIC SYNDROME
     Dosage: LOAD: 5 DAYS PF 0.3 MG/KG/DAY
     Dates: start: 20040105, end: 20040223
  2. SIMVASTATIN [Concomitant]
  3. ATENOLOL [Concomitant]
  4. INSULIN [Concomitant]
  5. PYRIDOXINE [Concomitant]
  6. FLUCONAZOLE [Concomitant]
  7. FILGRASTIM [Concomitant]
  8. LANSOPRAZOLE [Concomitant]
  9. CO-PROXAMOL [Concomitant]

REACTIONS (15)
  - ACUTE MYELOID LEUKAEMIA [None]
  - ASTHENIA [None]
  - BLOOD PRESSURE DECREASED [None]
  - DIARRHOEA [None]
  - DISTURBANCE IN ATTENTION [None]
  - ELECTROCARDIOGRAM QT PROLONGED [None]
  - FEBRILE NEUTROPENIA [None]
  - FEELING ABNORMAL [None]
  - FLUSHING [None]
  - GENERAL PHYSICAL HEALTH DETERIORATION [None]
  - HAEMOGLOBIN DECREASED [None]
  - HEADACHE [None]
  - MIOSIS [None]
  - PNEUMONIA [None]
  - URINE OUTPUT DECREASED [None]
